FAERS Safety Report 15395749 (Version 1)
Quarter: 2018Q3

REPORT INFORMATION
  Report Type: Spontaneous
  Country: US (occurrence: US)
  Receive Date: 20180912
  Receipt Date: 20180912
  Transmission Date: 20181010
  Serious: Yes (Other)
  Sender: FDA-Public Use
  Company Number: None

PATIENT
  Age: 65 Year
  Sex: Female
  Weight: 72.45 kg

DRUGS (7)
  1. PREMARIN 0.625MG/1 GM VAGINAL CREAM [Concomitant]
     Dates: start: 20150330, end: 20180912
  2. CLOBETASOL PROPIONATE 0.05% CREAM [Concomitant]
     Dates: start: 20150330, end: 20180912
  3. ROSUVASTATIN 10 MG [Concomitant]
     Active Substance: ROSUVASTATIN
     Dates: start: 20180327, end: 20180912
  4. ALPRAZOLAM 0.5 MG [Concomitant]
     Active Substance: ALPRAZOLAM
     Dates: start: 20150330, end: 20180912
  5. AVALIDE [Suspect]
     Active Substance: HYDROCHLOROTHIAZIDE\IRBESARTAN
     Indication: ESSENTIAL HYPERTENSION
  6. OMEPRAZOLE 40 MG [Concomitant]
     Active Substance: OMEPRAZOLE
     Dates: start: 20150330, end: 20180912
  7. METFORMIN HCL 500 MG [Concomitant]
     Active Substance: METFORMIN HYDROCHLORIDE
     Dates: start: 20150330, end: 20180912

REACTIONS (2)
  - Palpitations [None]
  - Headache [None]

NARRATIVE: CASE EVENT DATE: 20150815
